FAERS Safety Report 25036897 (Version 8)
Quarter: 2025Q2

REPORT INFORMATION
  Report Type: Spontaneous
  Country: PL (occurrence: PL)
  Receive Date: 20250304
  Receipt Date: 20250501
  Transmission Date: 20250716
  Serious: Yes (Other)
  Sender: PFIZER
  Company Number: PL-MABXIENCE RESEARCH S.L.-2502PL01254

PATIENT
  Age: 62 Year
  Sex: Female
  Weight: 90 kg

DRUGS (15)
  1. BEVACIZUMAB [Suspect]
     Active Substance: BEVACIZUMAB
     Indication: Colorectal cancer
     Route: 042
  2. PANTOPRAZOLE [Suspect]
     Active Substance: PANTOPRAZOLE
     Indication: Colorectal cancer
     Route: 048
  3. ATROPINE [Suspect]
     Active Substance: ATROPINE
     Indication: Colorectal cancer
     Route: 058
  4. DECADRON [Suspect]
     Active Substance: DEXAMETHASONE
     Indication: Colorectal cancer
     Route: 042
  5. DICLOFENAC [Suspect]
     Active Substance: DICLOFENAC
  6. FLUOROURACIL [Suspect]
     Active Substance: FLUOROURACIL
     Indication: Colorectal cancer
     Route: 042
  7. FLUOROURACIL [Suspect]
     Active Substance: FLUOROURACIL
     Route: 042
  8. IRINOTECAN HYDROCHLORIDE [Suspect]
     Active Substance: IRINOTECAN HYDROCHLORIDE
     Indication: Colorectal cancer
     Route: 042
  9. LEUCOVORIN [Suspect]
     Active Substance: LEUCOVORIN\LEUCOVORIN CALCIUM
     Indication: Colorectal cancer
     Route: 042
  10. ONDANSETRON [Suspect]
     Active Substance: ONDANSETRON
     Indication: Colorectal cancer
     Route: 042
  11. BISOPROLOL [Concomitant]
     Active Substance: BISOPROLOL
     Dosage: BISOPROLOL 5 MG 0.5-0-0
  12. ESCITALOPRAM [Concomitant]
     Active Substance: ESCITALOPRAM OXALATE
     Indication: Depression
     Dosage: ESCITALOPRAM 10 MG 1-0-0 (FOR 2 YEARS)
  13. GALANTAMINE [Concomitant]
     Active Substance: GALANTAMINE
     Indication: Neuropathy peripheral
  14. LEVOTHYROXINE [Concomitant]
     Active Substance: LEVOTHYROXINE
     Dosage: 125 MCG 1-0-0
  15. VITAMIN C [Concomitant]
     Active Substance: ASCORBIC ACID
     Dosage: TAKES SEVERAL TABLETS DAILY TO IMPROVE THE TASTE OF WATER/DRINKS IT WITH MEDICATIONS
     Route: 048

REACTIONS (3)
  - Neuropathy peripheral [Not Recovered/Not Resolved]
  - Hyponatraemia [Unknown]
  - Underdose [Unknown]
